FAERS Safety Report 19983469 (Version 1)
Quarter: 2021Q4

REPORT INFORMATION
  Report Type: Spontaneous
  Country: US (occurrence: US)
  Receive Date: 20211021
  Receipt Date: 20211021
  Transmission Date: 20220303
  Serious: Yes (Death)
  Sender: FDA-Public Use
  Company Number: US-SECURA BIO, INC.-2021-SECUR-US003394

PATIENT
  Age: 80 Year
  Sex: Male

DRUGS (1)
  1. COPIKTRA [Suspect]
     Active Substance: DUVELISIB
     Indication: Product used for unknown indication
     Dosage: UNK
     Route: 048
     Dates: start: 20210122, end: 20210930

REACTIONS (1)
  - Death [Fatal]

NARRATIVE: CASE EVENT DATE: 20211002
